FAERS Safety Report 9296678 (Version 3)
Quarter: 2013Q2

REPORT INFORMATION
  Report Type: Report from Study
  Country: NL (occurrence: NL)
  Receive Date: 20130517
  Receipt Date: 20130606
  Transmission Date: 20140414
  Serious: Yes (Death, Hospitalization)
  Sender: FDA-Public Use
  Company Number: PHHY2013NL049084

PATIENT
  Age: 77 Year
  Sex: Female

DRUGS (12)
  1. ZOMETA [Suspect]
     Dosage: 4 MG PER 100 ML
     Route: 042
  2. ZOMETA [Suspect]
     Dosage: 4 MG PER 100 ML
     Route: 042
     Dates: start: 20120601
  3. ZOMETA [Suspect]
     Dosage: 4 MG PER 100 ML
     Route: 042
     Dates: start: 20130307
  4. ZOMETA [Suspect]
     Dosage: 4 MG PER 100 ML
     Route: 042
     Dates: start: 20130419
  5. ZOMETA [Suspect]
     Dosage: 4 MG, PER MONTH
     Route: 042
  6. METOCLOPRAMIDE [Concomitant]
     Dosage: UNK UKN, UNK
  7. OXYNORM [Concomitant]
     Dosage: UNK UKN, UNK
  8. DEXAMETHASONE [Concomitant]
     Dosage: UNK UKN, UNK
  9. OMEPRAZOLE [Concomitant]
     Dosage: UNK UKN, UNK
  10. FENTANYL [Concomitant]
     Dosage: UNK UKN, UNK
  11. MACROGOL [Concomitant]
     Dosage: UNK UKN, UNK
  12. SLOW K [Concomitant]
     Dosage: UNK UKN, UNK

REACTIONS (2)
  - Fluid retention [Fatal]
  - Disease progression [Fatal]
